FAERS Safety Report 4492640-9 (Version None)
Quarter: 2004Q4

REPORT INFORMATION
  Report Type: 
  Country: None (occurrence: None)
  Receive Date: 20041029
  Receipt Date: 20041015
  Transmission Date: 20050328
  Serious: Yes (Other)
  Sender: FDA-Public Use
  Company Number: 208768

PATIENT
  Age: 53 Year
  Sex: Female

DRUGS (4)
  1. AVASTIN [Suspect]
     Indication: COLON CANCER METASTATIC
     Dosage: Q2W, INTRAVENOUS
     Route: 042
  2. IRINOTECAN HCL [Concomitant]
  3. FLUOROURACIL [Concomitant]
  4. LEUCOVORIN CALCIUM [Concomitant]

REACTIONS (9)
  - CATHETER RELATED COMPLICATION [None]
  - MEDIASTINAL DISORDER [None]
  - OEDEMA [None]
  - OEDEMA PERIPHERAL [None]
  - PHLEBOTHROMBOSIS [None]
  - RASH ERYTHEMATOUS [None]
  - SWELLING FACE [None]
  - TELANGIECTASIA [None]
  - VENA CAVA THROMBOSIS [None]
